FAERS Safety Report 8187953-3 (Version None)
Quarter: 2012Q1

REPORT INFORMATION
  Report Type: 
  Country: None (occurrence: None)
  Receive Date: 20120306
  Receipt Date: 20120227
  Transmission Date: 20120608
  Serious: Yes (Other)
  Sender: FDA-Public Use
  Company Number: JP-GLAXOSMITHKLINE-B0785270A

PATIENT

DRUGS (2)
  1. LENDORMIN [Concomitant]
     Indication: PRODUCT USED FOR UNKNOWN INDICATION
     Route: 048
  2. PAXIL [Suspect]
     Indication: DEPRESSION
     Route: 048

REACTIONS (7)
  - DISTURBANCE IN ATTENTION [None]
  - CRYING [None]
  - SUICIDAL IDEATION [None]
  - DIZZINESS [None]
  - NAUSEA [None]
  - DYSPNOEA [None]
  - FEELINGS OF WORTHLESSNESS [None]
